FAERS Safety Report 25756569 (Version 1)
Quarter: 2025Q3

REPORT INFORMATION
  Report Type: Spontaneous
  Country: US (occurrence: US)
  Receive Date: 20250903
  Receipt Date: 20250903
  Transmission Date: 20251020
  Serious: Yes (Other)
  Sender: SANOFI AVENTIS
  Company Number: US-SA-2025SA262237

PATIENT
  Age: 78 Year
  Sex: Female

DRUGS (2)
  1. LOVENOX [Suspect]
     Active Substance: ENOXAPARIN SODIUM
     Indication: Product used for unknown indication
     Route: 065
  2. BRUKINSA [Suspect]
     Active Substance: ZANUBRUTINIB
     Indication: B-cell small lymphocytic lymphoma
     Dosage: 160 MG, BID
     Route: 048
     Dates: start: 20250710

REACTIONS (9)
  - Haemorrhagic ascites [Unknown]
  - Haemorrhage subcutaneous [Unknown]
  - Depressed mood [Unknown]
  - Feeling hot [Recovering/Resolving]
  - Contusion [Unknown]
  - Blood iron decreased [Unknown]
  - Abdominal distension [Unknown]
  - Pleural effusion [Unknown]
  - Asthenia [Unknown]
